FAERS Safety Report 7406466-7 (Version None)
Quarter: 2011Q2

REPORT INFORMATION
  Report Type: 
  Country: None (occurrence: None)
  Receive Date: 20110411
  Receipt Date: 20110331
  Transmission Date: 20111010
  Serious: Yes (Other)
  Sender: FDA-Public Use
  Company Number: US-ASTRAZENECA-2011SE18647

PATIENT
  Age: 47 Year
  Sex: Female

DRUGS (1)
  1. SEROQUEL [Suspect]
     Route: 048

REACTIONS (7)
  - INSOMNIA [None]
  - NIGHTMARE [None]
  - OVARIAN OPERATION [None]
  - OPERATIVE HAEMORRHAGE [None]
  - MUSCULOSKELETAL DISCOMFORT [None]
  - BREAST CANCER [None]
  - STRESS [None]
